FAERS Safety Report 24557162 (Version 4)
Quarter: 2024Q4

REPORT INFORMATION
  Report Type: Report from Study
  Country: NL (occurrence: NL)
  Receive Date: 20241028
  Receipt Date: 20241205
  Transmission Date: 20250114
  Serious: Yes (Hospitalization, Other)
  Sender: ABBVIE
  Company Number: NL-ABBVIE-5976674

PATIENT
  Age: 67 Year
  Sex: Female

DRUGS (17)
  1. CARBIDOPA\LEVODOPA [Suspect]
     Active Substance: CARBIDOPA\LEVODOPA
     Indication: Parkinson^s disease
     Dosage: BIR:0.82ML/H; LIR:0.50ML/H; ED:0.30ML?REMAINS AT 24 HOURS
     Route: 058
     Dates: start: 20240305, end: 20240314
  2. CARBIDOPA\LEVODOPA [Suspect]
     Active Substance: CARBIDOPA\LEVODOPA
     Dosage: BIR:0.88ML/H?REMAINS AT 24 HOURS
     Route: 058
     Dates: start: 20240328, end: 20240404
  3. CARBIDOPA\LEVODOPA [Suspect]
     Active Substance: CARBIDOPA\LEVODOPA
     Dosage: BIR:0.94ML/H; LIR:0.53ML/H?REMAINS AT 24 HOURS
     Route: 058
     Dates: start: 20241023, end: 20241024
  4. CARBIDOPA\LEVODOPA [Suspect]
     Active Substance: CARBIDOPA\LEVODOPA
     Dosage: REMAINS AT 24 HOURS
     Route: 058
     Dates: start: 20241024
  5. CARBIDOPA\LEVODOPA [Suspect]
     Active Substance: CARBIDOPA\LEVODOPA
     Dosage: REMAINS AT 24 HOURS
     Route: 058
     Dates: start: 20240617, end: 20240829
  6. CARBIDOPA\LEVODOPA [Suspect]
     Active Substance: CARBIDOPA\LEVODOPA
     Dosage: BIR:0.88ML/H; LIR:0.50ML/H; ED:0.30ML?REMAINS AT 24 HOURS
     Route: 058
     Dates: start: 20240404, end: 20240617
  7. CARBIDOPA\LEVODOPA [Suspect]
     Active Substance: CARBIDOPA\LEVODOPA
     Dosage: BIR:0.86ML/H?REMAINS AT 24 HOURS
     Route: 058
     Dates: start: 20240321, end: 20240328
  8. CARBIDOPA\LEVODOPA [Suspect]
     Active Substance: CARBIDOPA\LEVODOPA
     Dosage: BIR:0.84ML/H; LIR:0.50ML/H; ED:3.00ML, REMAINS AT 24 HOURS
     Route: 058
     Dates: start: 20240314, end: 20240321
  9. CARBIDOPA\LEVODOPA [Suspect]
     Active Substance: CARBIDOPA\LEVODOPA
     Dosage: REMAINS AT 24 HOURS?LAST ADMIN DATE 2024
     Route: 058
     Dates: start: 20240205
  10. CARBIDOPA\LEVODOPA [Suspect]
     Active Substance: CARBIDOPA\LEVODOPA
     Dosage: BIR:0.91ML/H; LIR:0.53ML/H; ED:0.30ML?REMAINS AT 24 HOURS
     Route: 058
     Dates: start: 20240829, end: 20241023
  11. BENSERAZIDE HYDROCHLORIDE\LEVODOPA [Concomitant]
     Active Substance: BENSERAZIDE HYDROCHLORIDE\LEVODOPA
     Indication: Parkinson^s disease
     Dosage: 1 AND HALF
     Route: 050
  12. LEVOTHYROXINE [Concomitant]
     Active Substance: LEVOTHYROXINE
     Indication: Thyroid disorder
  13. PANTOPRAZOLE [Concomitant]
     Active Substance: PANTOPRAZOLE
     Indication: Gastrointestinal disorder
  14. FLAX SEEDS [Concomitant]
     Active Substance: FLAX SEEDS
     Indication: Gastrointestinal motility disorder
  15. POLYETHYLENE GLYCOLS [Concomitant]
     Active Substance: POLYETHYLENE GLYCOLS
     Indication: Abnormal faeces
  16. REQUIP [Concomitant]
     Active Substance: ROPINIROLE HYDROCHLORIDE
     Indication: Product used for unknown indication
     Dosage: SHORT WORKING
  17. REQUIP [Concomitant]
     Active Substance: ROPINIROLE HYDROCHLORIDE
     Indication: Product used for unknown indication
     Dosage: LONG WORKING

REACTIONS (6)
  - Fall [Recovered/Resolved]
  - Cervical vertebral fracture [Not Recovered/Not Resolved]
  - Confusional state [Recovered/Resolved]
  - Wrong product administered [Not Recovered/Not Resolved]
  - Rehabilitation therapy [Not Recovered/Not Resolved]
  - Hyperresponsive to stimuli [Unknown]

NARRATIVE: CASE EVENT DATE: 20240101
